FAERS Safety Report 10901725 (Version 2)
Quarter: 2015Q3

REPORT INFORMATION
  Report Type: Report from Study
  Country: US (occurrence: US)
  Receive Date: 20150310
  Receipt Date: 20150812
  Transmission Date: 20151125
  Serious: Yes (Hospitalization, Other)
  Sender: FDA-Public Use
  Company Number: US-GILEAD-2015-0141193

PATIENT
  Age: 51 Year
  Sex: Female

DRUGS (23)
  1. BACLOFEN. [Concomitant]
     Active Substance: BACLOFEN
  2. AMBRISENTAN [Suspect]
     Active Substance: AMBRISENTAN
     Indication: SUBSTANCE USE
  3. ACYCLOVIR                          /00587301/ [Concomitant]
     Active Substance: ACYCLOVIR
  4. DEPAKOTE [Concomitant]
     Active Substance: DIVALPROEX SODIUM
  5. THERAGRAN-M                        /07499601/ [Concomitant]
  6. ENABLEX [Concomitant]
     Active Substance: DARIFENACIN\DARIFENACIN HYDROBROMIDE
  7. FAMOTIDINE. [Concomitant]
     Active Substance: FAMOTIDINE
  8. MORPHINE SULFATE. [Concomitant]
     Active Substance: MORPHINE SULFATE
  9. LASIX [Concomitant]
     Active Substance: FUROSEMIDE
  10. AMBRISENTAN [Suspect]
     Active Substance: AMBRISENTAN
     Indication: PULMONARY HYPERTENSION
     Dosage: 5 MG, QD
     Route: 065
     Dates: start: 20120217
  11. NEURONTIN [Concomitant]
     Active Substance: GABAPENTIN
  12. LEVOTHYROXINE. [Concomitant]
     Active Substance: LEVOTHYROXINE
  13. METHENAMINE [Concomitant]
     Active Substance: METHENAMINE
  14. LEVETIRACETAM. [Concomitant]
     Active Substance: LEVETIRACETAM
  15. BISACODYL. [Concomitant]
     Active Substance: BISACODYL
  16. ZYVOX [Concomitant]
     Active Substance: LINEZOLID
  17. IPRATROPIUM BROMIDE. [Concomitant]
     Active Substance: IPRATROPIUM BROMIDE
  18. ZOLOFT [Concomitant]
     Active Substance: SERTRALINE HYDROCHLORIDE
  19. VALPROIC ACID. [Concomitant]
     Active Substance: VALPROIC ACID
  20. PHENYTOIN. [Concomitant]
     Active Substance: PHENYTOIN
  21. ASCORBIC ACID. [Concomitant]
     Active Substance: ASCORBIC ACID
  22. VITAMIN D                          /00107901/ [Concomitant]
     Active Substance: ERGOCALCIFEROL
  23. BACTRIM [Concomitant]
     Active Substance: SULFAMETHOXAZOLE\TRIMETHOPRIM

REACTIONS (1)
  - Suicide attempt [Recovered/Resolved]

NARRATIVE: CASE EVENT DATE: 20150221
